FAERS Safety Report 6553863-8 (Version None)
Quarter: 2010Q1

REPORT INFORMATION
  Report Type: 
  Country: None (occurrence: None)
  Receive Date: 20100127
  Receipt Date: 20100115
  Transmission Date: 20100710
  Serious: Yes (Hospitalization)
  Sender: FDA-Public Use
  Company Number: IE-MEDIMMUNE-MEDI-0010296

PATIENT
  Sex: Male

DRUGS (2)
  1. SYNAGIS [Suspect]
     Route: 030
     Dates: start: 20091029
  2. AUGMENTIN '125' [Concomitant]

REACTIONS (2)
  - CARDIAC OPERATION [None]
  - LOWER RESPIRATORY TRACT INFECTION [None]
